FAERS Safety Report 22646835 (Version 1)
Quarter: 2023Q2

REPORT INFORMATION
  Report Type: Spontaneous
  Country: US (occurrence: None)
  Receive Date: 20230626
  Receipt Date: 20230626
  Transmission Date: 20230722
  Serious: Yes (Hospitalization)
  Sender: FDA-Public Use
  Company Number: None

PATIENT
  Sex: Female

DRUGS (1)
  1. CAPECITABINE [Suspect]
     Active Substance: CAPECITABINE
     Indication: Lung disorder
     Dosage: FREQUENCY : TWICE A DAY;?
     Route: 048
     Dates: start: 202303

REACTIONS (5)
  - Pruritus [None]
  - Hypoaesthesia [None]
  - Hypoaesthesia [None]
  - Pain [None]
  - Platelet count decreased [None]

NARRATIVE: CASE EVENT DATE: 20230501
